FAERS Safety Report 23799795 (Version 1)
Quarter: 2024Q2

REPORT INFORMATION
  Report Type: Spontaneous
  Country: US (occurrence: None)
  Receive Date: 20240429
  Receipt Date: 20240429
  Transmission Date: 20240716
  Serious: Yes (Death)
  Sender: FDA-Public Use
  Company Number: None

PATIENT
  Age: 84 Year
  Sex: Male
  Weight: 66.42 kg

DRUGS (5)
  1. REVLIMID [Suspect]
     Active Substance: LENALIDOMIDE
     Indication: Plasma cell myeloma
     Dosage: 1  TOT - TOTAL DAILY ORAL?
     Route: 048
     Dates: start: 20240131, end: 20240426
  2. Lomotil 2.5 mg-0.025 mg tablet [Concomitant]
  3. megestrol 400 mg/10 mL (10 mL) oral suspension [Concomitant]
  4. midodrine 5 mg tablet [Concomitant]
  5. ACYCLOVIR [Concomitant]
     Active Substance: ACYCLOVIR

REACTIONS (1)
  - Death [None]

NARRATIVE: CASE EVENT DATE: 20240324
